FAERS Safety Report 5044346-5 (Version None)
Quarter: 2006Q2

REPORT INFORMATION
  Report Type: 
  Country: None (occurrence: None)
  Receive Date: 20060629
  Receipt Date: 20060620
  Transmission Date: 20061013
  Serious: Yes (Hospitalization)
  Sender: FDA-Public Use
  Company Number: VISP-UK-0606S-0420

PATIENT
  Age: 82 Year
  Sex: Female
  Weight: 60.5 kg

DRUGS (3)
  1. VISIPAQUE [Suspect]
     Indication: AORTIC STENOSIS
     Dosage: 70 MG, SINGLE DOSE, I.A.
     Route: 013
     Dates: start: 20060613, end: 20060613
  2. BUMETANIDE [Concomitant]
  3. ASPIRIN [Concomitant]

REACTIONS (4)
  - BLOOD PRESSURE INCREASED [None]
  - CARDIAC PROCEDURE COMPLICATION [None]
  - CEREBRAL DISORDER [None]
  - DEPRESSED LEVEL OF CONSCIOUSNESS [None]
